FAERS Safety Report 7583019-1 (Version None)
Quarter: 2011Q2

REPORT INFORMATION
  Report Type: 
  Country: None (occurrence: None)
  Receive Date: 20110630
  Receipt Date: 20110627
  Transmission Date: 20111010
  Serious: Yes (Life-Threatening)
  Sender: FDA-Public Use
  Company Number: PL-BRISTOL-MYERS SQUIBB COMPANY-15266836

PATIENT
  Age: 58 Year
  Sex: Male

DRUGS (3)
  1. CISPLATIN [Suspect]
     Indication: HEAD AND NECK CANCER
     Dosage: RECENT INF:22JUN10,NO OF INF:4
     Route: 042
     Dates: start: 20100420
  2. CETUXIMAB [Suspect]
     Indication: HEAD AND NECK CANCER
     Dosage: NO OF INF:12,FORMULATION:5MG/ML.RECENT INF ON06JUL10
     Route: 042
     Dates: start: 20100420
  3. FLUOROURACIL [Suspect]
     Indication: HEAD AND NECK CANCER
     Dosage: RECENT INF:25JUN10,NO OF INF:4,DOSAGE:CONTINOUS INF FROM DAY 1-DAY 4 OF CYCLE
     Route: 042
     Dates: start: 20100420

REACTIONS (1)
  - PULMONARY ARTERY THROMBOSIS [None]
